FAERS Safety Report 10382419 (Version 2)
Quarter: 2014Q4

REPORT INFORMATION
  Report Type: Spontaneous
  Country: IT (occurrence: IT)
  Receive Date: 20140813
  Receipt Date: 20141216
  Transmission Date: 20150528
  Serious: Yes (Other)
  Sender: FDA-Public Use
  Company Number: IT-PFIZER INC-2014224993

PATIENT
  Age: 55 Year
  Sex: Male

DRUGS (5)
  1. PANTOPRAZOLE [Concomitant]
     Active Substance: PANTOPRAZOLE SODIUM
     Dosage: 40 MG, UNK
     Route: 048
  2. DELTACORTENE [Suspect]
     Active Substance: PREDNISONE
     Indication: ALLERGIC GRANULOMATOUS ANGIITIS
     Dosage: 75 MG, DAILY
     Route: 048
     Dates: start: 20140716, end: 20140803
  3. LYRICA [Suspect]
     Active Substance: PREGABALIN
     Dosage: 600 UG, DAILY
     Route: 048
     Dates: start: 20140601, end: 20140803
  4. LAROXYL [Suspect]
     Active Substance: AMITRIPTYLINE
     Indication: DEPRESSION
     Dosage: 15 GTT, DAILY
     Route: 048
     Dates: start: 20140601, end: 20140803
  5. INDOXEN [Concomitant]
     Active Substance: INDOMETHACIN
     Route: 048

REACTIONS (1)
  - Hallucination, visual [Recovering/Resolving]

NARRATIVE: CASE EVENT DATE: 20140725
